FAERS Safety Report 18802126 (Version 1)
Quarter: 2021Q1

REPORT INFORMATION
  Report Type: Spontaneous
  Country: US (occurrence: US)
  Receive Date: 20210128
  Receipt Date: 20210128
  Transmission Date: 20210419
  Serious: No
  Sender: FDA-Public Use
  Company Number: US-ASTRAZENECA-2021A000268

PATIENT
  Sex: Male

DRUGS (2)
  1. GENERIC NEXIUM [Suspect]
     Active Substance: ESOMEPRAZOLE MAGNESIUM
     Dosage: UNKNOWN
     Route: 065
  2. NEXIUM [Suspect]
     Active Substance: ESOMEPRAZOLE MAGNESIUM
     Indication: GASTROOESOPHAGEAL REFLUX DISEASE
     Route: 065

REACTIONS (5)
  - Product dose omission issue [Unknown]
  - Drug ineffective [Unknown]
  - Illness [Unknown]
  - Gastrointestinal disorder [Unknown]
  - Weight fluctuation [Unknown]
